FAERS Safety Report 5582136-5 (Version None)
Quarter: 2008Q1

REPORT INFORMATION
  Report Type: 
  Country: None (occurrence: None)
  Receive Date: 20080104
  Receipt Date: 20071220
  Transmission Date: 20080703
  Serious: Yes (Life-Threatening, Hospitalization)
  Sender: FDA-Public Use
  Company Number: US-ROXANE LABORATORIES, INC-2007-DE-07471GD

PATIENT
  Age: 82 Year
  Sex: Female

DRUGS (9)
  1. SERTRALINE [Suspect]
     Indication: ANXIETY
  2. HYDROCHLOROTHIAZIDE [Suspect]
     Indication: HYPERTENSION
  3. ASPIRIN [Concomitant]
  4. RANITIDINE HCL [Concomitant]
  5. METOPROLOL TARTRATE [Concomitant]
     Indication: HYPERTENSION
  6. FEXOFENADINE [Concomitant]
  7. ALBUTEROL [Concomitant]
     Route: 055
  8. RISEDRONATE SODIUM [Concomitant]
  9. FLUTICASONE/SALMETEROL [Concomitant]
     Route: 055

REACTIONS (4)
  - DRUG INTERACTION [None]
  - FALL [None]
  - HYPONATRAEMIA [None]
  - INAPPROPRIATE ANTIDIURETIC HORMONE SECRETION [None]
